FAERS Safety Report 9049595 (Version 3)
Quarter: 2013Q4

REPORT INFORMATION
  Report Type: Spontaneous
  Country: IT (occurrence: IT)
  Receive Date: 20130205
  Receipt Date: 20131014
  Transmission Date: 20140711
  Serious: Yes (Other)
  Sender: FDA-Public Use
  Company Number: IT-ROCHE-1187462

PATIENT
  Age: 54 Year
  Sex: Male
  Weight: 70 kg

DRUGS (13)
  1. AVASTIN [Suspect]
     Indication: ADENOCARCINOMA OF COLON
     Route: 042
     Dates: start: 20120905, end: 20121122
  2. FLUOROURACILE TEVA [Suspect]
     Indication: ADENOCARCINOMA OF COLON
     Route: 042
     Dates: start: 20120905, end: 20121122
  3. FLUOROURACILE TEVA [Suspect]
     Route: 042
     Dates: start: 20120905, end: 20121122
  4. IRINOTECAN [Suspect]
     Indication: ADENOCARCINOMA OF COLON
     Route: 042
     Dates: start: 20120905, end: 20121122
  5. SOLDESAM [Concomitant]
     Indication: ADENOCARCINOMA OF COLON
     Route: 042
     Dates: start: 20120905, end: 20121122
  6. ONDANSETRON [Concomitant]
     Indication: ADENOCARCINOMA OF COLON
     Route: 042
     Dates: start: 20120105, end: 20121122
  7. CALCIUM LEVOFOLINATE [Concomitant]
     Indication: ADENOCARCINOMA OF COLON
     Route: 042
     Dates: start: 20120905, end: 20121122
  8. NIMESULIDE [Concomitant]
     Route: 048
  9. VELAMOX [Concomitant]
     Route: 048
  10. PRITOR [Concomitant]
     Route: 048
  11. PRITOR [Concomitant]
     Route: 048
  12. RANIDIL [Concomitant]
     Indication: ADENOCARCINOMA OF COLON
     Route: 042
     Dates: start: 20120905, end: 20121122
  13. PRITOR [Concomitant]
     Route: 048

REACTIONS (8)
  - Constipation [Recovered/Resolved]
  - Lacrimation increased [Recovered/Resolved]
  - Salivary hypersecretion [Recovered/Resolved]
  - Stomatitis [Recovered/Resolved]
  - Vomiting [Recovered/Resolved]
  - Erectile dysfunction [Recovered/Resolved]
  - Nausea [Recovered/Resolved]
  - Eye irritation [Recovered/Resolved]
